FAERS Safety Report 14598024 (Version 2)
Quarter: 2018Q3

REPORT INFORMATION
  Report Type: Spontaneous
  Country: US (occurrence: US)
  Receive Date: 20180305
  Receipt Date: 20180702
  Transmission Date: 20181010
  Serious: No
  Sender: FDA-Public Use
  Company Number: US-PFIZER INC-2018049437

PATIENT
  Age: 44 Year
  Sex: Female
  Weight: 59 kg

DRUGS (18)
  1. NEULASTA [Concomitant]
     Active Substance: PEGFILGRASTIM
     Dosage: UNK
  2. DECADRON [Concomitant]
     Active Substance: DEXAMETHASONE
     Dosage: 20 MG IN 100 ML NS OVER 30 MINUTES
  3. HEXALEN [Concomitant]
     Active Substance: ALTRETAMINE
     Indication: CHEMOTHERAPY
     Dosage: UNK
  4. CYTOXAN [Concomitant]
     Active Substance: CYCLOPHOSPHAMIDE
     Dosage: UNK
  5. NEOSAR [Concomitant]
     Active Substance: CYCLOPHOSPHAMIDE
     Indication: CHEMOTHERAPY
     Dosage: UNK
  6. HYDROCHLOROTHIAZIDE. [Concomitant]
     Active Substance: HYDROCHLOROTHIAZIDE
     Dosage: UNK
     Dates: start: 20151010
  7. DOXIL [Concomitant]
     Active Substance: DOXORUBICIN HYDROCHLORIDE
     Indication: CHEMOTHERAPY
     Dosage: UNK
  8. TAXOTERE [Concomitant]
     Active Substance: DOCETAXEL
     Indication: CHEMOTHERAPY
     Dosage: UNK, 250 ML NS INFUSED OVER 1 TO 2 HOURS
     Route: 041
  9. PEPCID [Concomitant]
     Active Substance: FAMOTIDINE
     Dosage: 20 MG, UNK
     Route: 041
  10. ZANTAC [Concomitant]
     Active Substance: RANITIDINE HYDROCHLORIDE
     Dosage: 100 MG IN 100 ML NS, OVER 30 MINUTES
     Route: 042
  11. PROCRIT [Concomitant]
     Active Substance: ERYTHROPOIETIN
     Dosage: UNK
  12. ADRIAMYCIN [Concomitant]
     Active Substance: DOXORUBICIN HYDROCHLORIDE
     Indication: CHEMOTHERAPY
     Dosage: UNK
  13. ZOFRAN [Concomitant]
     Active Substance: ONDANSETRON HYDROCHLORIDE
     Dosage: 30 MG, IN100ML NS OVER 30MIN
  14. BENADRYL [Concomitant]
     Active Substance: DIPHENHYDRAMINE HYDROCHLORIDE
     Dosage: 50 MG, UNK
     Route: 041
  15. THYROXIN [Concomitant]
     Active Substance: LEVOTHYROXINE
     Dosage: UNK
  16. DOCETAXEL. [Suspect]
     Active Substance: DOCETAXEL
     Indication: CHEMOTHERAPY
     Dosage: 250 MG, EVERY 3 WEEKS, 6 CYCLES
     Dates: start: 20050106, end: 20051001
  17. DOCETAXEL. [Suspect]
     Active Substance: DOCETAXEL
     Indication: BREAST CANCER FEMALE
  18. TAGAMET [Concomitant]
     Active Substance: CIMETIDINE
     Dosage: 300 MG, UNK, OVER 30 MINUTES
     Route: 042

REACTIONS (5)
  - Alopecia [Not Recovered/Not Resolved]
  - Hair texture abnormal [Not Recovered/Not Resolved]
  - Madarosis [Not Recovered/Not Resolved]
  - Hair disorder [Not Recovered/Not Resolved]
  - Hair colour changes [Not Recovered/Not Resolved]

NARRATIVE: CASE EVENT DATE: 20050114
